FAERS Safety Report 20842389 (Version 2)
Quarter: 2022Q2

REPORT INFORMATION
  Report Type: Spontaneous
  Country: US (occurrence: US)
  Receive Date: 20220518
  Receipt Date: 20220614
  Transmission Date: 20220721
  Serious: Yes (Hospitalization, Other)
  Sender: FDA-Public Use
  Company Number: US-BRISTOL-MYERS SQUIBB COMPANY-2022-034921

PATIENT
  Age: 78 Year
  Sex: Male
  Weight: 95.254 kg

DRUGS (2)
  1. POMALYST [Suspect]
     Active Substance: POMALIDOMIDE
     Indication: Plasma cell myeloma
     Dosage: D1-D21 EVERY 28 DAYS
     Route: 048
     Dates: start: 20210201
  2. POMALYST [Suspect]
     Active Substance: POMALIDOMIDE
     Dosage: D1-21 Q28 DAYS
     Route: 048
     Dates: start: 20210201, end: 20220601

REACTIONS (2)
  - Disease progression [Not Recovered/Not Resolved]
  - Adverse event [Not Recovered/Not Resolved]
